FAERS Safety Report 21907863 (Version 26)
Quarter: 2025Q3

REPORT INFORMATION
  Report Type: Report from Study
  Country: CA (occurrence: CA)
  Receive Date: 20230125
  Receipt Date: 20250829
  Transmission Date: 20251021
  Serious: Yes (Life-Threatening, Hospitalization, Other)
  Sender: GLAXOSMITHKLINE
  Company Number: CA-GLAXOSMITHKLINE-CA2023AMR006751

PATIENT
  Age: 67 Year
  Sex: Male

DRUGS (15)
  1. MEPOLIZUMAB [Suspect]
     Active Substance: MEPOLIZUMAB
     Indication: Asthma
     Dosage: 100 MG, Q4W
  2. MEPOLIZUMAB [Suspect]
     Active Substance: MEPOLIZUMAB
     Indication: Asthma
     Dosage: 100 MG, Q4W
  3. MEPOLIZUMAB [Suspect]
     Active Substance: MEPOLIZUMAB
     Indication: Asthma
     Dosage: 100 MG, Q4W
  4. MEPOLIZUMAB [Suspect]
     Active Substance: MEPOLIZUMAB
     Indication: Asthma
     Dosage: 100 MG, Q4W
  5. MEPOLIZUMAB [Suspect]
     Active Substance: MEPOLIZUMAB
     Indication: Asthma
     Dosage: 100 MG, Q4W
  6. MEPOLIZUMAB [Suspect]
     Active Substance: MEPOLIZUMAB
     Indication: Asthma
     Dosage: 100 MG, Q4W
  7. MEPOLIZUMAB [Suspect]
     Active Substance: MEPOLIZUMAB
     Indication: Asthma
     Dosage: 100 MG, Q4W
  8. MEPOLIZUMAB [Suspect]
     Active Substance: MEPOLIZUMAB
     Indication: Asthma
     Dosage: 100 MG, Q4W
  9. MEPOLIZUMAB [Suspect]
     Active Substance: MEPOLIZUMAB
     Indication: Asthma
     Dosage: 100 MG, Q4W
  10. MEPOLIZUMAB [Suspect]
     Active Substance: MEPOLIZUMAB
     Indication: Asthma
     Dosage: 100 MG, Q4W
  11. MEPOLIZUMAB [Suspect]
     Active Substance: MEPOLIZUMAB
     Indication: Asthma
     Dosage: 100 MG, Q4W
  12. MEPOLIZUMAB [Suspect]
     Active Substance: MEPOLIZUMAB
     Indication: Asthma
     Dosage: 100 MG, Q4W
  13. VENTOLIN [Suspect]
     Active Substance: ALBUTEROL SULFATE
     Indication: Dyspnoea
     Dosage: 10 DF, MO (AS NEEDED)
  14. VENTOLIN [Suspect]
     Active Substance: ALBUTEROL SULFATE
  15. VENTOLIN [Suspect]
     Active Substance: ALBUTEROL SULFATE

REACTIONS (46)
  - Dyspnoea [Recovered/Resolved]
  - Loss of consciousness [Recovered/Resolved]
  - Bronchospasm [Recovered/Resolved]
  - Endotracheal intubation [Unknown]
  - Renal neoplasm [Unknown]
  - Medical induction of coma [Not Recovered/Not Resolved]
  - Pneumonia [Recovering/Resolving]
  - Respiratory disorder [Recovered/Resolved]
  - Diabetes mellitus [Unknown]
  - Near death experience [Recovered/Resolved]
  - Intestinal resection [Unknown]
  - Chronic obstructive pulmonary disease [Not Recovered/Not Resolved]
  - Oxygen saturation decreased [Unknown]
  - Tachypnoea [Unknown]
  - Heart rate increased [Unknown]
  - Chest discomfort [Recovered/Resolved]
  - Wheezing [Unknown]
  - Hyperhidrosis [Unknown]
  - Joint swelling [Not Recovered/Not Resolved]
  - Blood pressure systolic increased [Unknown]
  - Anxiety [Not Recovered/Not Resolved]
  - Pulmonary mass [Not Recovered/Not Resolved]
  - Contusion [Not Recovered/Not Resolved]
  - Ecchymosis [Not Recovered/Not Resolved]
  - Visual impairment [Not Recovered/Not Resolved]
  - Sleep disorder [Recovering/Resolving]
  - Balance disorder [Unknown]
  - Fall [Unknown]
  - Scratch [Unknown]
  - Constipation [Unknown]
  - Decreased appetite [Unknown]
  - Oedema peripheral [Not Recovered/Not Resolved]
  - Road traffic accident [Recovered/Resolved]
  - Wound [Recovered/Resolved]
  - Sensation of blood flow [Unknown]
  - Body temperature increased [Unknown]
  - Increased tendency to bruise [Unknown]
  - Productive cough [Unknown]
  - Stress [Not Recovered/Not Resolved]
  - Hyperventilation [Recovered/Resolved]
  - Vital functions abnormal [Unknown]
  - Dizziness [Recovered/Resolved]
  - Conjunctival hyperaemia [Not Recovered/Not Resolved]
  - Wrong technique in device usage process [Unknown]
  - Inappropriate schedule of product administration [Unknown]
  - Product dose omission issue [Unknown]

NARRATIVE: CASE EVENT DATE: 20230118
